FAERS Safety Report 24294101 (Version 1)
Quarter: 2024Q3

REPORT INFORMATION
  Report Type: Spontaneous
  Country: US (occurrence: None)
  Receive Date: 20240906
  Receipt Date: 20240906
  Transmission Date: 20241017
  Serious: No
  Sender: DOMPE FARMACEUTICI
  Company Number: US-FARMAPROD-202404-1492

PATIENT
  Sex: Female
  Weight: 53.52 kg

DRUGS (35)
  1. OXERVATE [Suspect]
     Active Substance: CENEGERMIN-BKBJ
     Indication: Neurotrophic keratopathy
     Route: 047
     Dates: start: 20230530, end: 20230724
  2. OXERVATE [Suspect]
     Active Substance: CENEGERMIN-BKBJ
     Route: 047
     Dates: start: 20240417
  3. OXERVATE [Suspect]
     Active Substance: CENEGERMIN-BKBJ
  4. OXERVATE [Suspect]
     Active Substance: CENEGERMIN-BKBJ
  5. OXERVATE [Suspect]
     Active Substance: CENEGERMIN-BKBJ
  6. HERBALS\HONEY [Suspect]
     Active Substance: HERBALS\HONEY
  7. BORIC ACID\EPHEDRINE HYDROCHLORIDE\MAFENIDE HYDROCHLORIDE\TAURINE\ZINC [Suspect]
     Active Substance: BORIC ACID\EPHEDRINE HYDROCHLORIDE\MAFENIDE HYDROCHLORIDE\TAURINE\ZINC SULFATE
  8. UNSPECIFIED INGREDIENT [Concomitant]
     Active Substance: UNSPECIFIED INGREDIENT
  9. BERBERINE [Concomitant]
     Active Substance: BERBERINE
  10. IVERMECTIN [Concomitant]
     Active Substance: IVERMECTIN
  11. METRONIDAZOLE [Concomitant]
     Active Substance: METRONIDAZOLE
  12. AZELAIC ACID [Concomitant]
     Active Substance: AZELAIC ACID
  13. MAGNESIUM [Concomitant]
     Active Substance: MAGNESIUM
  14. UNSPECIFIED INGREDIENT [Concomitant]
     Active Substance: UNSPECIFIED INGREDIENT
     Dosage: 0.05 %-1 %
  15. CEQUA [Concomitant]
     Active Substance: CYCLOSPORINE
     Dosage: DROPERETTE
  16. REFRESH LACRI-LUBE [Concomitant]
     Active Substance: MINERAL OIL\PETROLATUM
  17. REFRESH TEARS [Concomitant]
     Active Substance: CARBOXYMETHYLCELLULOSE SODIUM
  18. SOOTHE HYDRATION [Concomitant]
     Active Substance: POVIDONE
  19. SOOTHE [Concomitant]
     Active Substance: BISMUTH SUBSALICYLATE\GLYCERIN\PROPYLENE GLYCOL
     Dosage: 20%-80%
  20. GENTEAL TEARS [Concomitant]
     Active Substance: DEXTRAN 70\HYPROMELLOSE 2910 (4000 MPA.S)
     Dosage: 0.1%-0.3%
  21. GENTEAL NIGHT-TIME PM [Concomitant]
     Active Substance: MINERAL OIL\PETROLATUM
     Dosage: 3 %-94 %
  22. SYSTANE (HYPROMELLOSE 2910 (4000 MPA.S)) [Concomitant]
     Active Substance: HYPROMELLOSE 2910 (4000 MPA.S)
     Dosage: 3 %-94 %
  23. SYSTANE COMPLETE [Concomitant]
     Active Substance: PROPYLENE GLYCOL
  24. B-COMPLEX PLUS VITAMIN C [Concomitant]
  25. HERBALS\TURMERIC [Concomitant]
     Active Substance: HERBALS\TURMERIC
  26. FENUGREEK SEED [Concomitant]
     Active Substance: FENUGREEK SEED
  27. CHONDROITIN SULFATE A\GLUCOSAMINE [Concomitant]
     Active Substance: CHONDROITIN SULFATE A\GLUCOSAMINE
     Dosage: 250-200 MG
  28. VITAMIN D3 [Concomitant]
     Active Substance: CHOLECALCIFEROL
  29. CALCIUM 600+D PLUS MINERALS [Concomitant]
  30. MINERALS\VITAMINS [Concomitant]
     Active Substance: MINERALS\VITAMINS
  31. PROGESTERONE [Concomitant]
     Active Substance: PROGESTERONE
  32. TYLENOL [Concomitant]
     Active Substance: ACETAMINOPHEN
  33. VITAMIN B COMPLEX [Concomitant]
     Active Substance: CYANOCOBALAMIN\DEXPANTHENOL\NIACINAMIDE\PYRIDOXINE HYDROCHLORIDE\RIBOFLAVIN 5^-PHOSPHATE SODIUM\THIA
  34. IBUPROFEN [Concomitant]
     Active Substance: IBUPROFEN
  35. COENZYME Q10 [Concomitant]
     Active Substance: DIETARY SUPPLEMENT\UBIDECARENONE

REACTIONS (5)
  - Eye irritation [Unknown]
  - Eye pain [Unknown]
  - Ocular discomfort [Unknown]
  - Headache [Unknown]
  - Sinus pain [Unknown]
